FAERS Safety Report 7806036-2 (Version None)
Quarter: 2011Q4

REPORT INFORMATION
  Report Type: 
  Country: None (occurrence: None)
  Receive Date: 20111011
  Receipt Date: 20110926
  Transmission Date: 20120403
  Serious: Yes (Other)
  Sender: FDA-Public Use
  Company Number: US-JNJFOC-20111000873

PATIENT
  Age: 72 Year
  Weight: 59.88 kg

DRUGS (4)
  1. LISTERINE TOTAL CARE ZERO MOUTHWASH [Suspect]
     Indication: BREATH ODOUR
     Dosage: RECOMMENDED AMOUNT, THREE TIMES
     Route: 048
     Dates: start: 20110919, end: 20110926
  2. ARIMIDEX [Concomitant]
     Indication: NEOPLASM MALIGNANT
     Route: 065
     Dates: start: 20080101
  3. DIOVAN [Concomitant]
     Indication: CARDIAC DISORDER
     Route: 065
     Dates: start: 20090401
  4. ASPIRIN [Concomitant]
     Indication: CARDIAC DISORDER
     Route: 065
     Dates: start: 20100401

REACTIONS (2)
  - ORAL DISCOMFORT [None]
  - ORAL MUCOSAL EXFOLIATION [None]
